FAERS Safety Report 13741315 (Version 2)
Quarter: 2017Q4

REPORT INFORMATION
  Report Type: Spontaneous
  Country: US (occurrence: US)
  Receive Date: 20170711
  Receipt Date: 20171003
  Transmission Date: 20180320
  Serious: Yes (Other)
  Sender: FDA-Public Use
  Company Number: US-ABBVIE-17K-163-2033828-00

PATIENT
  Age: 35 Year
  Sex: Female

DRUGS (1)
  1. HUMIRA [Suspect]
     Active Substance: ADALIMUMAB
     Indication: PSORIASIS
     Route: 058
     Dates: start: 201510, end: 20170717

REACTIONS (11)
  - Sleep apnoea syndrome [Not Recovered/Not Resolved]
  - Protein total increased [Unknown]
  - High density lipoprotein decreased [Unknown]
  - Alanine aminotransferase increased [Unknown]
  - Epistaxis [Not Recovered/Not Resolved]
  - Dyspepsia [Unknown]
  - Low density lipoprotein increased [Unknown]
  - Non-high-density lipoprotein cholesterol increased [Unknown]
  - Blood cholesterol increased [Unknown]
  - Globulins increased [Unknown]
  - Aspartate aminotransferase increased [Unknown]

NARRATIVE: CASE EVENT DATE: 201707
